FAERS Safety Report 6388986-X (Version None)
Quarter: 2009Q4

REPORT INFORMATION
  Report Type: 
  Country: None (occurrence: None)
  Receive Date: 20091001
  Receipt Date: 20090922
  Transmission Date: 20100525
  Serious: Yes (Other)
  Sender: FDA-Public Use
  Company Number: ADR27632009

PATIENT
  Age: 67 Year
  Sex: Male

DRUGS (9)
  1. RAMIPRIL [Suspect]
     Indication: HYPERTENSION
     Dosage: 10 MG
     Route: 048
     Dates: start: 20070411, end: 20070707
  2. ADCAL-D3 [Concomitant]
  3. ASPIRIN [Concomitant]
  4. ATENOLOL [Concomitant]
  5. GLYCERYL TRINITRATE [Concomitant]
  6. PREDNISOLONE [Concomitant]
  7. RABEPRAZOLE [Concomitant]
  8. SIMVASTATIN [Concomitant]
  9. STRONTIUM RANELATE [Concomitant]

REACTIONS (3)
  - DYSPHAGIA [None]
  - OROPHARYNGEAL SWELLING [None]
  - RHINITIS [None]
